FAERS Safety Report 6371311-8 (Version None)
Quarter: 2009Q3

REPORT INFORMATION
  Report Type: 
  Country: None (occurrence: None)
  Receive Date: 20090923
  Receipt Date: 20090916
  Transmission Date: 20100115
  Serious: Yes (Hospitalization)
  Sender: FDA-Public Use
  Company Number: US-JNJFOC-20090904243

PATIENT
  Sex: Female
  Weight: 28 kg

DRUGS (6)
  1. REMICADE [Suspect]
     Route: 042
  2. REMICADE [Suspect]
     Indication: COLITIS
     Route: 042
  3. 5-AMINOSALICYLIC ACID [Concomitant]
     Route: 048
  4. METHOTREXATE [Concomitant]
  5. METRONIDAZOLE [Concomitant]
  6. VANCOMYCIN [Concomitant]
     Indication: EVIDENCE BASED TREATMENT

REACTIONS (1)
  - COLITIS [None]
